FAERS Safety Report 7929622-8 (Version None)
Quarter: 2011Q4

REPORT INFORMATION
  Report Type: 
  Country: None (occurrence: None)
  Receive Date: 20111116
  Receipt Date: 20111029
  Transmission Date: 20120403
  Serious: Yes (Hospitalization, Other)
  Sender: FDA-Public Use
  Company Number: 2011AP002529

PATIENT
  Age: 25 Year
  Sex: Male

DRUGS (5)
  1. QUETIAPINE [Suspect]
     Indication: PSYCHOTIC DISORDER
     Dosage: 500 MG; HS;   500 MG; QD;
  2. DIVALPROEX SODIUM [Suspect]
     Indication: PSYCHOTIC DISORDER
     Dosage: 1000 MG; BID;
  3. HALOPERIDOL [Concomitant]
  4. RISPERIDONE [Suspect]
     Indication: PSYCHOTIC DISORDER
     Dosage: 1 MG; BID;   4 MG;HS;   2 MG; BID;
  5. BENZTROPINE MESYLATE [Concomitant]

REACTIONS (5)
  - HYPERAMMONAEMIA [None]
  - THOUGHT BLOCKING [None]
  - CONDITION AGGRAVATED [None]
  - PSYCHOTIC DISORDER [None]
  - DISORIENTATION [None]
